FAERS Safety Report 8180658-4 (Version None)
Quarter: 2012Q1

REPORT INFORMATION
  Report Type: 
  Country: None (occurrence: None)
  Receive Date: 20120302
  Receipt Date: 20120224
  Transmission Date: 20120608
  Serious: Yes (Hospitalization)
  Sender: FDA-Public Use
  Company Number: US-CELGENEUS-163-21880-12012432

PATIENT
  Age: 67 Year
  Sex: Female
  Weight: 101.6 kg

DRUGS (10)
  1. DEXAMETHASONE [Suspect]
     Dosage: 20 MILLIGRAM
     Route: 048
     Dates: start: 20111227
  2. BORTEZOMIB [Suspect]
     Dosage: .7 MILLIGRAM/SQ. METER
     Route: 041
     Dates: start: 20111227, end: 20120106
  3. DEXAMETHASONE [Suspect]
     Dosage: 20 MILLIGRAM
     Route: 048
     Dates: start: 20111025
  4. ASPIRIN [Concomitant]
     Dosage: 325 MILLIGRAM
     Route: 048
     Dates: start: 20111227
  5. REVLIMID [Suspect]
     Dosage: 25 MILLIGRAM
     Route: 048
     Dates: start: 20111025
  6. REVLIMID [Suspect]
     Dosage: 15 MILLIGRAM
     Route: 048
     Dates: start: 20111227, end: 20120109
  7. BORTEZOMIB [Suspect]
     Dosage: .7 MILLIGRAM/SQ. METER
     Route: 041
     Dates: start: 20111025
  8. TOPROL-XL [Concomitant]
     Route: 065
  9. ASPIRIN [Concomitant]
     Dosage: 325 MILLIGRAM
     Route: 048
     Dates: start: 20111025
  10. LISINOPRIL [Concomitant]
     Dosage: 10 MILLIGRAM
     Route: 065
     Dates: start: 20120201

REACTIONS (5)
  - PERIPHERAL MOTOR NEUROPATHY [None]
  - HYPERTENSION [None]
  - TOXICITY TO VARIOUS AGENTS [None]
  - CONFUSIONAL STATE [None]
  - PERIPHERAL SENSORY NEUROPATHY [None]
